FAERS Safety Report 14577072 (Version 1)
Quarter: 2018Q1

REPORT INFORMATION
  Report Type: Spontaneous
  Country: US (occurrence: US)
  Receive Date: 20180225
  Receipt Date: 20180225
  Transmission Date: 20180509
  Serious: Yes (Disabling)
  Sender: FDA-Public Use
  Company Number: None

PATIENT
  Age: 71 Year
  Sex: Male
  Weight: 89.1 kg

DRUGS (13)
  1. PANTOPRAZOLE [Concomitant]
     Active Substance: PANTOPRAZOLE
  2. PRAVASTATIN. [Concomitant]
     Active Substance: PRAVASTATIN
  3. ASPIRIN. [Concomitant]
     Active Substance: ASPIRIN
  4. HYDRAZINE [Suspect]
     Active Substance: HYDRAZINE SULFATE
     Indication: INTRAOPERATIVE CARE
     Dates: start: 20180215
  5. MULTIVITAMIN/MINERAL [Concomitant]
  6. FLOMAX [Concomitant]
     Active Substance: TAMSULOSIN HYDROCHLORIDE
  7. WARFARIN [Concomitant]
     Active Substance: WARFARIN
  8. HYDRAZINE [Suspect]
     Active Substance: HYDRAZINE SULFATE
     Indication: BLOOD PRESSURE MEASUREMENT
     Dates: start: 20180215
  9. VENTOULIN HFA [Concomitant]
  10. SOTALOL. [Concomitant]
     Active Substance: SOTALOL
  11. COLASE [Concomitant]
  12. MEATNX [Concomitant]
  13. TESTOSTERONE. [Concomitant]
     Active Substance: TESTOSTERONE

REACTIONS (2)
  - Drug ineffective [None]
  - Headache [None]

NARRATIVE: CASE EVENT DATE: 20180215
